FAERS Safety Report 5357686-7 (Version None)
Quarter: 2007Q2

REPORT INFORMATION
  Report Type: 
  Country: None (occurrence: None)
  Receive Date: 20070614
  Receipt Date: 20070604
  Transmission Date: 20071010
  Serious: Yes (Other)
  Sender: FDA-Public Use
  Company Number: FR-PFIZER INC-2007046535

PATIENT
  Age: 59 Year
  Sex: Male

DRUGS (3)
  1. LYRICA [Suspect]
     Indication: NEURALGIA
  2. DURAGESIC-100 [Interacting]
  3. ACTISKENAN [Concomitant]

REACTIONS (2)
  - DRUG INTERACTION [None]
  - MYOCLONUS [None]
